FAERS Safety Report 8308923 (Version 4)
Quarter: 2013Q4

REPORT INFORMATION
  Report Type: Spontaneous
  Country: US (occurrence: US)
  Receive Date: 20111222
  Receipt Date: 20131119
  Transmission Date: 20140711
  Serious: Yes (Hospitalization)
  Sender: FDA-Public Use
  Company Number: US-ACTELION-A-US2011-58483

PATIENT
  Age: 43 Year
  Sex: Female

DRUGS (5)
  1. TRACLEER [Suspect]
     Indication: PULMONARY ARTERIAL HYPERTENSION
     Dosage: 125 MG, BID
     Route: 048
     Dates: start: 20080719
  2. TRACLEER [Suspect]
     Dosage: 62.5 MG, BID
     Route: 048
     Dates: start: 20080619, end: 20080718
  3. REVATIO [Concomitant]
  4. COUMADIN [Concomitant]
  5. FLOLAN [Concomitant]

REACTIONS (7)
  - Mesenteric artery stenosis [Not Recovered/Not Resolved]
  - Renal failure [Not Recovered/Not Resolved]
  - Gastritis [Recovered/Resolved]
  - Nausea [Not Recovered/Not Resolved]
  - Vomiting [Not Recovered/Not Resolved]
  - Angioplasty [Recovering/Resolving]
  - Abdominal pain [Not Recovered/Not Resolved]
